FAERS Safety Report 21846913 (Version 1)
Quarter: 2023Q1

REPORT INFORMATION
  Report Type: Spontaneous
  Country: US (occurrence: US)
  Receive Date: 20230111
  Receipt Date: 20230111
  Transmission Date: 20230418
  Serious: Yes (Other)
  Sender: FDA-Public Use
  Company Number: US-AVET LIFESCIENCES LTD-2023-AVET-000002

PATIENT
  Age: 58 Year
  Sex: Female

DRUGS (3)
  1. LURASIDONE [Suspect]
     Active Substance: LURASIDONE
     Indication: Bipolar disorder
     Dosage: 20 MILLIGRAM PER DAY
     Route: 048
  2. LURASIDONE [Suspect]
     Active Substance: LURASIDONE
     Dosage: INCREASED TO 40 MILLIGRAM PER DAY
     Route: 048
  3. LURASIDONE [Suspect]
     Active Substance: LURASIDONE
     Dosage: 20 MILLIGRAM PER DAY
     Route: 048

REACTIONS (2)
  - Urinary retention [Recovered/Resolved]
  - Drug ineffective [Unknown]
